FAERS Safety Report 10409643 (Version 2)
Quarter: 2014Q3

REPORT INFORMATION
  Report Type: Spontaneous
  Country: JP (occurrence: JP)
  Receive Date: 20140826
  Receipt Date: 20140908
  Transmission Date: 20150326
  Serious: Yes (Hospitalization, Other)
  Sender: FDA-Public Use
  Company Number: JP-ASTELLAS-2014JP018488

PATIENT
  Age: 84 Year
  Sex: Male

DRUGS (4)
  1. LOXONIN [Suspect]
     Active Substance: LOXOPROFEN SODIUM
     Indication: PAIN
     Dosage: UNK, AS NEEDED ALMOST ONCE DAILY WHEN HAVING PAIN
     Route: 048
  2. XTANDI [Suspect]
     Active Substance: ENZALUTAMIDE
     Indication: PROSTATE CANCER
     Route: 048
  3. FAMOTIDINE. [Concomitant]
     Active Substance: FAMOTIDINE
     Indication: DUODENAL ULCER
     Dosage: UNK UNK, UNKNOWN FREQ.
     Route: 048
  4. LOXONIN [Suspect]
     Active Substance: LOXOPROFEN SODIUM
     Indication: ABDOMINAL PAIN

REACTIONS (4)
  - Anaemia [Unknown]
  - Abdominal pain [Unknown]
  - Gastrointestinal haemorrhage [Unknown]
  - Drug interaction [Unknown]
